FAERS Safety Report 7733543-3 (Version None)
Quarter: 2011Q3

REPORT INFORMATION
  Report Type: 
  Country: None (occurrence: None)
  Receive Date: 20110901
  Receipt Date: 20110819
  Transmission Date: 20111222
  Serious: Yes (Other)
  Sender: FDA-Public Use
  Company Number: 1000023141

PATIENT
  Age: 93 Year
  Sex: Female

DRUGS (7)
  1. SOTALEX (SOTALOL HYDROCHLORIDE) (SOTALOL HYDROCHLORIDE) [Concomitant]
  2. MEMANTINE HYDROCHLORIDE [Suspect]
     Dosage: 15 MG (15 MG,1 IN 1 D),ORAL
     Route: 048
     Dates: start: 20110530, end: 20110531
  3. MEMANTINE HYDROCHLORIDE [Suspect]
     Dosage: 5 MG (5 MG,1 IN 1 D),ORAL ; 10 MG (10 MG,1 IN 1 D),ORAL
     Route: 048
     Dates: start: 20110505
  4. MEMANTINE HYDROCHLORIDE [Suspect]
     Dosage: 5 MG (5 MG,1 IN 1 D),ORAL ; 10 MG (10 MG,1 IN 1 D),ORAL
     Route: 048
     Dates: end: 20110529
  5. EFFERALGAN (PARACETAMOL) (PARACETAMOL) [Concomitant]
  6. NEO-MERCAZOLE TAB [Concomitant]
  7. KARDEGIC (ACETYLSALICYLATE LYSINE) (ACETYLSALICYLATE LYSINE) [Concomitant]

REACTIONS (3)
  - VERTIGO [None]
  - CHOLELITHIASIS [None]
  - CHOLESTASIS [None]
